FAERS Safety Report 5204348-2 (Version None)
Quarter: 2007Q1

REPORT INFORMATION
  Report Type: 
  Country: None (occurrence: None)
  Receive Date: 20070110
  Receipt Date: 20060223
  Transmission Date: 20070707
  Serious: No
  Sender: FDA-Public Use
  Company Number: US-BRISTOL-MYERS SQUIBB COMPANY-13295035

PATIENT
  Sex: Male

DRUGS (4)
  1. ABILIFY [Suspect]
     Dates: end: 20060222
  2. RITALIN [Concomitant]
  3. TRAMADOL HCL [Concomitant]
  4. ETODOLAC [Concomitant]

REACTIONS (4)
  - ANXIETY [None]
  - DIZZINESS [None]
  - INSOMNIA [None]
  - MUSCLE TWITCHING [None]
